FAERS Safety Report 6809446-5 (Version None)
Quarter: 2010Q2

REPORT INFORMATION
  Report Type: 
  Country: None (occurrence: None)
  Receive Date: 20100625
  Receipt Date: 20100610
  Transmission Date: 20101027
  Serious: Yes (Death, Hospitalization)
  Sender: FDA-Public Use
  Company Number: AE 2010-106

PATIENT
  Age: 61 Year
  Sex: Male

DRUGS (5)
  1. FAZACLO ODT [Suspect]
     Indication: SCHIZOAFFECTIVE DISORDER
     Dosage: 400 MG DAILY PO
     Route: 048
     Dates: start: 20090304, end: 20100401
  2. ASPIRIN [Concomitant]
  3. ZANTAC [Concomitant]
  4. SODIUM CHLORIDE [Concomitant]
  5. ABILIFY [Concomitant]

REACTIONS (5)
  - BLOOD GLUCOSE DECREASED [None]
  - BLOOD POTASSIUM INCREASED [None]
  - CARDIOVASCULAR DISORDER [None]
  - ELECTROCARDIOGRAM ABNORMAL [None]
  - ELECTROLYTE IMBALANCE [None]
